FAERS Safety Report 11454840 (Version 18)
Quarter: 2020Q1

REPORT INFORMATION
  Report Type: Report from Study
  Country: CO (occurrence: CO)
  Receive Date: 20150903
  Receipt Date: 20200212
  Transmission Date: 20200409
  Serious: Yes (Hospitalization, Other)
  Sender: FDA-Public Use
  Company Number: PHHY2015CO099346

PATIENT
  Age: 71 Year
  Sex: Male
  Weight: 80 kg

DRUGS (16)
  1. ATORVASTATIN [Suspect]
     Active Substance: ATORVASTATIN
     Indication: PRODUCT USED FOR UNKNOWN INDICATION
     Dosage: UNK
     Route: 065
  2. CARVEDILOL. [Concomitant]
     Active Substance: CARVEDILOL
     Indication: PRODUCT USED FOR UNKNOWN INDICATION
     Dosage: UNK
     Route: 065
  3. LOSARTAN. [Suspect]
     Active Substance: LOSARTAN
     Indication: PRODUCT USED FOR UNKNOWN INDICATION
     Dosage: UNK
     Route: 065
  4. CARVEDILOL. [Suspect]
     Active Substance: CARVEDILOL
     Indication: PRODUCT USED FOR UNKNOWN INDICATION
     Route: 065
  5. LOVASTATIN. [Concomitant]
     Active Substance: LOVASTATIN
     Indication: PRODUCT USED FOR UNKNOWN INDICATION
     Dosage: UNK
     Route: 065
     Dates: start: 2009
  6. TASIGNA [Suspect]
     Active Substance: NILOTINIB
     Indication: CHRONIC MYELOID LEUKAEMIA
     Dosage: 200 MG, BID (1 IN THE MORNING AND 1 AT NIGHT)
     Route: 048
     Dates: start: 20110108
  7. TASIGNA [Suspect]
     Active Substance: NILOTINIB
     Dosage: 200 MG, Q12H
     Route: 048
     Dates: start: 201803
  8. LOSARTAN. [Concomitant]
     Active Substance: LOSARTAN
     Indication: PRODUCT USED FOR UNKNOWN INDICATION
     Dosage: 1 OT, QD
     Route: 065
  9. XARELTO [Suspect]
     Active Substance: RIVAROXABAN
     Indication: COAGULOPATHY
     Dosage: UNK
     Route: 065
  10. FUROSEMIDE. [Suspect]
     Active Substance: FUROSEMIDE
     Indication: PRODUCT USED FOR UNKNOWN INDICATION
     Route: 065
  11. CARBIDOL [Concomitant]
     Indication: PRODUCT USED FOR UNKNOWN INDICATION
     Dosage: UNK
     Route: 065
     Dates: start: 2010
  12. ISOSORBIDE DINITRATE. [Concomitant]
     Active Substance: ISOSORBIDE DINITRATE
     Indication: PRODUCT USED FOR UNKNOWN INDICATION
     Dosage: UNK
     Route: 065
  13. ASPIRIN. [Concomitant]
     Active Substance: ASPIRIN
     Indication: PRODUCT USED FOR UNKNOWN INDICATION
     Dosage: UNK
     Route: 065
  14. ACETYLSALICYLIC ACID [Suspect]
     Active Substance: ASPIRIN
     Indication: PRODUCT USED FOR UNKNOWN INDICATION
     Dosage: UNK
     Route: 065
  15. ACETAMINOPHEN. [Concomitant]
     Active Substance: ACETAMINOPHEN
     Indication: PRODUCT USED FOR UNKNOWN INDICATION
     Dosage: UNK
     Route: 065
  16. APIXABAN [Concomitant]
     Active Substance: APIXABAN
     Indication: PRODUCT USED FOR UNKNOWN INDICATION
     Dosage: UNK
     Route: 065

REACTIONS (42)
  - Respiratory tract infection viral [Unknown]
  - Pulmonary hypertension [Unknown]
  - Diabetes mellitus [Unknown]
  - Apnoea [Unknown]
  - Fatigue [Unknown]
  - Trismus [Recovered/Resolved]
  - Head discomfort [Unknown]
  - Dyspnoea [Unknown]
  - Gait disturbance [Recovered/Resolved]
  - Inappropriate schedule of product administration [Unknown]
  - Pain in jaw [Recovering/Resolving]
  - Gastrointestinal infection [Recovered/Resolved]
  - Syncope [Recovered/Resolved]
  - Hypertension [Unknown]
  - Muscle spasms [Unknown]
  - Muscle rigidity [Recovering/Resolving]
  - Memory impairment [Recovered/Resolved]
  - Small intestinal haemorrhage [Recovered/Resolved]
  - Joint stiffness [Not Recovered/Not Resolved]
  - Depressed mood [Unknown]
  - Neck pain [Not Recovered/Not Resolved]
  - Testicular swelling [Unknown]
  - Fall [Unknown]
  - Dizziness [Unknown]
  - Spinal pain [Not Recovered/Not Resolved]
  - Cardiac disorder [Unknown]
  - Hypoaesthesia [Recovered/Resolved]
  - Dizziness [Recovered/Resolved]
  - Musculoskeletal stiffness [Recovered/Resolved]
  - Arthralgia [Recovered/Resolved]
  - Asphyxia [Unknown]
  - Cough [Unknown]
  - Urinary tract infection [Recovered/Resolved]
  - Thrombosis [Not Recovered/Not Resolved]
  - Faeces discoloured [Recovered/Resolved]
  - Cardiopulmonary failure [Unknown]
  - Muscle spasms [Recovered/Resolved]
  - Cerebrovascular accident [Recovered/Resolved]
  - Vomiting [Recovered/Resolved]
  - Pulmonary congestion [Unknown]
  - Tooth loss [Unknown]
  - Pain in jaw [Recovered/Resolved]

NARRATIVE: CASE EVENT DATE: 20110108
